FAERS Safety Report 16302752 (Version 2)
Quarter: 2019Q2

REPORT INFORMATION
  Report Type: Report from Study
  Country: US (occurrence: US)
  Receive Date: 20190513
  Receipt Date: 20190515
  Transmission Date: 20190711
  Serious: No
  Sender: FDA-Public Use
  Company Number: PHEH2019US020293

PATIENT
  Age: 18 Year
  Sex: Female
  Weight: 72.57 kg

DRUGS (1)
  1. GILENYA [Suspect]
     Active Substance: FINGOLIMOD HYDROCHLORIDE
     Indication: MULTIPLE SCLEROSIS
     Dosage: 0.5 MG, QOD
     Route: 048
     Dates: start: 20190502

REACTIONS (2)
  - Heart rate decreased [Unknown]
  - Underdose [Unknown]

NARRATIVE: CASE EVENT DATE: 20190502
